FAERS Safety Report 9051304 (Version 3)
Quarter: 2013Q2

REPORT INFORMATION
  Report Type: Spontaneous
  Country: SE (occurrence: SE)
  Receive Date: 20130206
  Receipt Date: 20130521
  Transmission Date: 20140414
  Serious: Yes (Hospitalization, Other)
  Sender: FDA-Public Use
  Company Number: PHHY2013SE010496

PATIENT
  Sex: Male

DRUGS (10)
  1. TASIGNA [Suspect]
     Indication: GASTROINTESTINAL STROMAL TUMOUR
     Dosage: 200 MG, BID
     Route: 048
     Dates: start: 201206, end: 20130130
  2. TASIGNA [Suspect]
     Indication: OFF LABEL USE
  3. TROMBYL [Concomitant]
     Dosage: 75 MG, QD
  4. BRILIQUE [Concomitant]
     Dosage: 90 MG, BID
  5. ATORVASTATIN [Concomitant]
     Dosage: 80 MG, QD
  6. ARIXTRA [Concomitant]
  7. SELOKEN [Concomitant]
     Dosage: 50 MG, BID
  8. FINASTERIDE [Concomitant]
  9. OMEPRAZOLE [Concomitant]
  10. METFORMIN [Concomitant]

REACTIONS (5)
  - Coronary artery stenosis [Unknown]
  - Angina unstable [Recovered/Resolved]
  - Gastrointestinal stromal tumour [Unknown]
  - Malignant neoplasm progression [Unknown]
  - Arthralgia [Recovered/Resolved]
